FAERS Safety Report 25229530 (Version 1)
Quarter: 2025Q2

REPORT INFORMATION
  Report Type: Spontaneous
  Country: FR (occurrence: FR)
  Receive Date: 20250423
  Receipt Date: 20250423
  Transmission Date: 20250716
  Serious: Yes (Life-Threatening, Hospitalization, Other)
  Sender: AUROBINDO
  Company Number: FR-AFSSAPS-PA2025000237

PATIENT
  Age: 75 Year
  Sex: Female
  Weight: 80 kg

DRUGS (3)
  1. CARBOPLATIN [Suspect]
     Active Substance: CARBOPLATIN
     Indication: Breast cancer
     Route: 051
     Dates: start: 20241231, end: 20250211
  2. PACLITAXEL [Suspect]
     Active Substance: PACLITAXEL
     Indication: Breast cancer
     Route: 051
     Dates: start: 20241231, end: 20250211
  3. KEYTRUDA [Suspect]
     Active Substance: PEMBROLIZUMAB
     Indication: Breast cancer
     Route: 051
     Dates: start: 20241231, end: 20250211

REACTIONS (1)
  - Encephalitis [Not Recovered/Not Resolved]

NARRATIVE: CASE EVENT DATE: 20250212
